FAERS Safety Report 6221298-3 (Version None)
Quarter: 2009Q2

REPORT INFORMATION
  Report Type: 
  Country: None (occurrence: None)
  Receive Date: 20090610
  Receipt Date: 20090608
  Transmission Date: 20091009
  Serious: Yes (Hospitalization)
  Sender: FDA-Public Use
  Company Number: KR-BRISTOL-MYERS SQUIBB COMPANY-14653620

PATIENT
  Age: 60 Year
  Sex: Male

DRUGS (5)
  1. CETUXIMAB [Suspect]
     Indication: HEAD AND NECK CANCER
     Route: 042
     Dates: start: 20090520
  2. CISPLATIN [Suspect]
     Indication: HEAD AND NECK CANCER
     Route: 042
     Dates: start: 20090520
  3. DOCETAXEL [Suspect]
     Indication: HEAD AND NECK CANCER
     Route: 042
     Dates: start: 20090520
  4. MAGNESIUM OXIDE [Concomitant]
     Dates: start: 20090522
  5. BACLOFEN [Concomitant]
     Dates: start: 20090523, end: 20090529

REACTIONS (2)
  - ABDOMINAL PAIN [None]
  - ANOREXIA [None]
